FAERS Safety Report 5007848-3 (Version None)
Quarter: 2006Q2

REPORT INFORMATION
  Report Type: 
  Country: None (occurrence: None)
  Receive Date: 20060522
  Receipt Date: 20060515
  Transmission Date: 20061013
  Serious: Yes (Other)
  Sender: FDA-Public Use
  Company Number: US-JNJFOC-20030904432

PATIENT
  Sex: Male
  Weight: 102.06 kg

DRUGS (33)
  1. RISPERDAL [Suspect]
     Dosage: BEDTIME
     Route: 048
  2. RISPERDAL [Suspect]
     Route: 048
  3. RISPERDAL [Suspect]
     Route: 048
  4. RISPERDAL [Suspect]
     Dosage: 1.5 MG IN THE MORNING; 3 MG AT BEDTIME
     Route: 048
  5. RISPERDAL [Suspect]
     Indication: BIPOLAR DISORDER
     Dosage: BEDTIME
     Route: 048
  6. RISPERDAL [Suspect]
     Indication: SCHIZOAFFECTIVE DISORDER
     Dosage: BEDTIME FOR FOUR WEEKS
     Route: 048
  7. RISPERIDONE [Suspect]
     Indication: BIPOLAR DISORDER
  8. RISPERIDONE [Suspect]
     Indication: SCHIZOAFFECTIVE DISORDER
     Dosage: BEDTIME
  9. RISPERDAL CONSTA [Suspect]
     Indication: BIPOLAR DISORDER
     Route: 030
  10. RISPERDAL CONSTA [Suspect]
     Indication: SCHIZOAFFECTIVE DISORDER
     Route: 030
  11. METFORMIN [Concomitant]
  12. HALOPERIDOL [Concomitant]
  13. LITHIUM CARBONATE [Concomitant]
  14. WELLBUTRIN [Concomitant]
  15. PROZAC [Concomitant]
  16. MELLARIL [Concomitant]
  17. NORVASC [Concomitant]
  18. MONOPRIL [Concomitant]
  19. TRAZODONE HCL [Concomitant]
  20. ZYPREXA [Concomitant]
  21. ATIVAN [Concomitant]
  22. LOTREL [Concomitant]
  23. LOTREL [Concomitant]
  24. PRINIVIL [Concomitant]
  25. STRATTERA [Concomitant]
  26. GEODON [Concomitant]
  27. PROLIXIN [Concomitant]
  28. AMANTADINE HCL [Concomitant]
  29. ZANTAC [Concomitant]
  30. RITALIN [Concomitant]
  31. NOVOLIN [Concomitant]
  32. SEROQUEL [Concomitant]
  33. GLYBURIDE [Concomitant]

REACTIONS (19)
  - BLOOD GLUCOSE INCREASED [None]
  - DELUSION [None]
  - DIABETIC NEUROPATHY [None]
  - DIARRHOEA [None]
  - DIFFICULTY IN WALKING [None]
  - GLUCOSE URINE PRESENT [None]
  - HAEMORRHOIDAL HAEMORRHAGE [None]
  - HALLUCINATION, AUDITORY [None]
  - HALLUCINATION, VISUAL [None]
  - HOMICIDAL IDEATION [None]
  - HYPERKERATOSIS [None]
  - HYPERLIPIDAEMIA [None]
  - INTESTINAL POLYP [None]
  - MUSCULOSKELETAL STIFFNESS [None]
  - RECTAL HAEMORRHAGE [None]
  - SCIATICA [None]
  - SEDATION [None]
  - TARDIVE DYSKINESIA [None]
  - URINE KETONE BODY PRESENT [None]
